FAERS Safety Report 12486724 (Version 5)
Quarter: 2018Q3

REPORT INFORMATION
  Report Type: Spontaneous
  Country: US (occurrence: US)
  Receive Date: 20160621
  Receipt Date: 20180924
  Transmission Date: 20181010
  Serious: Yes (Other)
  Sender: FDA-Public Use
  Company Number: US-CELGENEUS-USA-2016064398

PATIENT
  Age: 56 Year
  Sex: Female

DRUGS (6)
  1. SINGULAIR [Concomitant]
     Active Substance: MONTELUKAST SODIUM
     Indication: SEASONAL ALLERGY
     Route: 065
     Dates: start: 201601
  2. NOVOLIN N [Concomitant]
     Active Substance: INSULIN HUMAN
     Indication: DIABETES MELLITUS
     Route: 065
     Dates: start: 2015
  3. LOSARTAN. [Concomitant]
     Active Substance: LOSARTAN
     Indication: CARDIAC DISORDER
     Route: 065
     Dates: start: 201601
  4. OTEZLA [Suspect]
     Active Substance: APREMILAST
     Indication: PSORIASIS
     Dosage: 60 MILLIGRAM
     Route: 048
     Dates: start: 20160412
  5. AMOXICILLIN CLAVULANATE [Suspect]
     Active Substance: AMOXICILLIN\CLAVULANIC ACID
     Indication: UPPER RESPIRATORY TRACT INFECTION
     Route: 065
     Dates: start: 20160609, end: 20160614
  6. CARVEDILOL. [Concomitant]
     Active Substance: CARVEDILOL
     Indication: CARDIAC DISORDER
     Route: 065
     Dates: start: 201601

REACTIONS (6)
  - Seasonal allergy [Unknown]
  - Diarrhoea [Unknown]
  - Nausea [Unknown]
  - Dyspnoea [Unknown]
  - Eye movement disorder [Unknown]
  - Muscle twitching [Unknown]

NARRATIVE: CASE EVENT DATE: 20160419
